FAERS Safety Report 11025323 (Version 1)
Quarter: 2015Q2

REPORT INFORMATION
  Report Type: Spontaneous
  Country: CA (occurrence: CA)
  Receive Date: 20150414
  Receipt Date: 20150414
  Transmission Date: 20150821
  Serious: Yes (Death)
  Sender: FDA-Public Use
  Company Number: CA-TEVA-554239ACC

PATIENT
  Age: 33 Year
  Sex: Female
  Weight: 152 kg

DRUGS (17)
  1. NORTRIPTYLINE [Suspect]
     Active Substance: NORTRIPTYLINE
     Indication: HYPERTENSION
     Route: 048
  2. RANITIDINE [Concomitant]
     Active Substance: RANITIDINE\RANITIDINE HYDROCHLORIDE
     Dosage: UNKNOWN FORM STRENGTH
     Route: 065
  3. LORAZEPAM. [Concomitant]
     Active Substance: LORAZEPAM
     Dosage: UNKNOWN FORM STRENGTH
     Route: 065
  4. PANTOPRAZOLE [Concomitant]
     Active Substance: PANTOPRAZOLE SODIUM
     Dosage: UNKNOWN FORM STRENGTH
     Route: 065
  5. SEROQUEL XR [Concomitant]
     Active Substance: QUETIAPINE FUMARATE
     Dosage: UNKNOWN FORM STRENGTH
     Route: 065
  6. SLOW-K [Concomitant]
     Active Substance: POTASSIUM CHLORIDE
     Dosage: TABLET, SUGAR COATED (UNKNOWN FORM STRENGTH)
     Route: 065
  7. AMITRIPTYLINE [Suspect]
     Active Substance: AMITRIPTYLINE
     Indication: DEPRESSION
     Route: 048
  8. AMITRIPTYLINE [Concomitant]
     Active Substance: AMITRIPTYLINE
     Dosage: UNKNOWN FORM STRENGTH
     Route: 065
  9. ASA [Concomitant]
     Active Substance: ASPIRIN
     Dosage: UNKNOWN FORM STRENGTH
     Route: 065
  10. LENOLTEC W/ CODEINE [Concomitant]
     Dosage: UNKNOWN FORM STRENGTH
     Route: 065
  11. CLONAZEPAM. [Concomitant]
     Active Substance: CLONAZEPAM
     Dosage: UNKNOWN FORM STRENGTH
     Route: 065
  12. IRBESARTAN. [Concomitant]
     Active Substance: IRBESARTAN
     Dosage: UNKNOWN FORM STRENGTH
     Route: 065
  13. RISPERIDONE. [Concomitant]
     Active Substance: RISPERIDONE
     Dosage: UNKNOWN FORM STRENGTH
     Route: 065
  14. NORTRIPTYLINE [Suspect]
     Active Substance: NORTRIPTYLINE
     Indication: ANXIETY
  15. PROPRANOLOL [Suspect]
     Active Substance: PROPRANOLOL\PROPRANOLOL HYDROCHLORIDE
     Route: 048
  16. NOVAMILOR TAB USP [Concomitant]
     Dosage: UNKNOWN FORM STRENGTH
     Route: 065
  17. PROPRANOLOL HYDROCHLORIDE INJECTION USP [Concomitant]
     Dosage: UNKNOWN FORM STRENGTH
     Route: 065

REACTIONS (1)
  - Death [Fatal]
